FAERS Safety Report 7544905-1 (Version None)
Quarter: 2011Q2

REPORT INFORMATION
  Report Type: 
  Country: None (occurrence: None)
  Receive Date: 20110614
  Receipt Date: 20110526
  Transmission Date: 20111010
  Serious: Yes (Other)
  Sender: FDA-Public Use
  Company Number: US-BAYER-201012996NA

PATIENT
  Age: 21 Year
  Sex: Female
  Weight: 119 kg

DRUGS (17)
  1. TERCONAZOLE [Concomitant]
  2. FLUCONAZOLE [Concomitant]
  3. ACTOPLUS MET [Concomitant]
  4. GLUCOPHAGE [Concomitant]
  5. SULFAMETHOXAZOLE AND TRIMETHOPRIM [Concomitant]
  6. CLINDAMYCIN [Concomitant]
  7. YAZ [Suspect]
     Indication: MENTAL DISORDER
     Route: 048
     Dates: start: 20050101, end: 20090101
  8. YAZ [Suspect]
     Indication: ORAL CONTRACEPTION
  9. CITALOPRAM HYDROBROMIDE [Concomitant]
  10. METFORMIN HCL [Concomitant]
  11. MINOCYCLINE HCL [Concomitant]
  12. ZOLPIDEM [Concomitant]
  13. LACTOBACILLUS ACIDOPHILUS [Concomitant]
  14. CLOTRIMAZOL [Concomitant]
  15. CIPROFLOXACIN [Concomitant]
  16. NAPROXEN [Concomitant]
  17. PHENAZOPYRIDINE HCL TAB [Concomitant]

REACTIONS (20)
  - NAUSEA [None]
  - ABDOMINAL DISTENSION [None]
  - HYPERTENSION [None]
  - DYSLIPIDAEMIA [None]
  - CHOLECYSTITIS CHRONIC [None]
  - MENTAL DISORDER [None]
  - DYSPNOEA EXERTIONAL [None]
  - VOMITING [None]
  - MULTIPLE INJURIES [None]
  - FATIGUE [None]
  - MIGRAINE [None]
  - GALLBLADDER CHOLESTEROLOSIS [None]
  - CONDITION AGGRAVATED [None]
  - PAIN IN JAW [None]
  - CHEST PAIN [None]
  - HEPATIC STEATOSIS [None]
  - CHEST DISCOMFORT [None]
  - ABDOMINAL PAIN UPPER [None]
  - DIARRHOEA [None]
  - PALPITATIONS [None]
